FAERS Safety Report 6812813-7 (Version None)
Quarter: 2010Q3

REPORT INFORMATION
  Report Type: 
  Country: None (occurrence: None)
  Receive Date: 20100701
  Receipt Date: 20100623
  Transmission Date: 20110219
  Serious: Yes (Other)
  Sender: FDA-Public Use
  Company Number: B0663164A

PATIENT
  Age: 50 Year
  Sex: Male

DRUGS (4)
  1. AUGMENTIN XR [Suspect]
     Indication: PRODUCT USED FOR UNKNOWN INDICATION
     Route: 065
     Dates: start: 20100609, end: 20100614
  2. ADVIL CS [Suspect]
     Indication: PRODUCT USED FOR UNKNOWN INDICATION
     Route: 065
  3. PANADOL [Concomitant]
  4. ALCOHOL [Concomitant]

REACTIONS (2)
  - CHROMATURIA [None]
  - HEPATIC STEATOSIS [None]
